FAERS Safety Report 9616227 (Version 2)
Quarter: 2014Q1

REPORT INFORMATION
  Report Type: Spontaneous
  Country: GB (occurrence: GB)
  Receive Date: 20131011
  Receipt Date: 20140122
  Transmission Date: 20141002
  Serious: Yes (Death, Other)
  Sender: FDA-Public Use
  Company Number: GB-PFIZER INC-2013289016

PATIENT
  Age: 57 Year
  Sex: Male
  Weight: 103 kg

DRUGS (11)
  1. PREGABALIN [Suspect]
     Indication: BACK PAIN
     Dosage: 175 MG, 3X/DAY
     Route: 048
     Dates: start: 20100305, end: 20130820
  2. PERINDOPRIL ERBUMINE [Concomitant]
     Dosage: 8 MG, 1X/DAY
  3. AVAMYS [Concomitant]
     Dosage: UNK
  4. TERBINAFINE [Concomitant]
     Dosage: 250 MG, 1X/DAY
  5. ROSUVASTATIN [Concomitant]
     Dosage: 10 MG, 1X/DAY
  6. OMEPRAZOLE [Concomitant]
     Dosage: 20 MG, 1X/DAY
  7. DOXAZOSIN [Concomitant]
     Dosage: 4 MG, 1X/DAY
  8. DIGOXIN [Concomitant]
     Dosage: 250 UG, 1X/DAY
  9. FEXOFENADINE [Concomitant]
     Dosage: 12 MG, 1X/DAY
  10. BISOPROLOL [Concomitant]
     Dosage: 10 MG, 1X/DAY
  11. WARFARIN [Concomitant]
     Dosage: UNK

REACTIONS (5)
  - Completed suicide [Fatal]
  - Suicidal ideation [Not Recovered/Not Resolved]
  - Self-injurious ideation [Unknown]
  - Aggression [Unknown]
  - Anhedonia [Unknown]
